FAERS Safety Report 8117360-0 (Version None)
Quarter: 2012Q1

REPORT INFORMATION
  Report Type: 
  Country: None (occurrence: None)
  Receive Date: 20120206
  Receipt Date: 20120126
  Transmission Date: 20120608
  Serious: Yes (Hospitalization, Disabling, Other)
  Sender: FDA-Public Use
  Company Number: US-ASTRAZENECA-2011SE36357

PATIENT
  Age: 81 Year
  Sex: Male

DRUGS (2)
  1. CRESTOR [Suspect]
     Route: 048
  2. CRESTOR [Suspect]
     Route: 048

REACTIONS (6)
  - MYOCARDIAL INFARCTION [None]
  - PNEUMONIA [None]
  - CARDIAC INFECTION [None]
  - BLINDNESS [None]
  - CLOSTRIDIAL INFECTION [None]
  - WRONG DRUG ADMINISTERED [None]
